FAERS Safety Report 10476505 (Version 2)
Quarter: 2014Q4

REPORT INFORMATION
  Report Type: Spontaneous
  Country: JP (occurrence: JP)
  Receive Date: 20140925
  Receipt Date: 20141016
  Transmission Date: 20150528
  Serious: Yes (Hospitalization, Other)
  Sender: FDA-Public Use
  Company Number: JP-GLAXOSMITHKLINE-B1036347A

PATIENT
  Age: 66 Year
  Sex: Male

DRUGS (2)
  1. ACYCLOVIR. [Suspect]
     Active Substance: ACYCLOVIR
     Indication: HERPES SIMPLEX ENCEPHALITIS
     Dosage: UNK, U
     Route: 048
  2. ACYCLOVIR. [Suspect]
     Active Substance: ACYCLOVIR

REACTIONS (3)
  - Renal disorder [Recovering/Resolving]
  - Oliguria [Unknown]
  - Renal tubular necrosis [Unknown]
